FAERS Safety Report 10085623 (Version 1)
Quarter: 2014Q2

REPORT INFORMATION
  Report Type: Report from Study
  Country: NL (occurrence: NL)
  Receive Date: 20140418
  Receipt Date: 20140418
  Transmission Date: 20141212
  Serious: Yes (Hospitalization)
  Sender: FDA-Public Use
  Company Number: NL-JNJFOC-20140403171

PATIENT
  Age: 55 Year
  Sex: Male

DRUGS (18)
  1. ABIRATERONE ACETATE [Suspect]
     Indication: PROSTATE CANCER
     Route: 048
     Dates: start: 20130611, end: 20130904
  2. FENTANYL [Concomitant]
     Route: 065
  3. FENTANYL [Concomitant]
     Route: 065
  4. FENTANYL [Concomitant]
     Route: 065
  5. OXYNORM [Concomitant]
     Dosage: 6/DAY??5 TO 20 MG IF NECESSARY
     Route: 065
  6. MOVICOLON [Concomitant]
     Route: 065
  7. SYMBICORT [Concomitant]
     Dosage: 12/400 MCG
     Route: 065
  8. SPIRIVA [Concomitant]
     Dosage: DAY 1
     Route: 065
  9. ETORICOXIB [Concomitant]
     Route: 065
  10. PARACETAMOL [Concomitant]
     Route: 065
  11. PREGABALIN [Concomitant]
     Route: 065
  12. ZOLADEX [Concomitant]
     Route: 065
  13. PREDNISOLONE [Concomitant]
     Route: 065
  14. PREDNISONE [Concomitant]
     Route: 065
  15. METOCLOPRAMIDE [Concomitant]
     Dosage: IF NECESSARY
     Route: 065
  16. ESOMEPRAZOLE [Concomitant]
     Route: 065
  17. TEMAZEPAM [Concomitant]
     Route: 065
  18. AMITRIPTYLIN [Concomitant]
     Route: 065

REACTIONS (6)
  - Metastases to liver [Unknown]
  - Pneumonia [Unknown]
  - Asthma [Unknown]
  - Metastatic pain [Unknown]
  - Myopathy [Unknown]
  - Metastases to pleura [Unknown]
